FAERS Safety Report 6239522-X (Version None)
Quarter: 2009Q2

REPORT INFORMATION
  Report Type: 
  Country: None (occurrence: None)
  Receive Date: 20090622
  Receipt Date: 20090612
  Transmission Date: 20091009
  Serious: Yes (Hospitalization, Other)
  Sender: FDA-Public Use
  Company Number: US-AMGEN-QUU348653

PATIENT
  Sex: Female
  Weight: 67.2 kg

DRUGS (5)
  1. ENBREL [Suspect]
     Indication: RHEUMATOID ARTHRITIS
     Route: 058
     Dates: start: 20081022
  2. VITAMIN TAB [Concomitant]
     Dates: start: 20080101
  3. PREDNISONE [Concomitant]
  4. VICODIN [Concomitant]
     Dates: start: 20080101
  5. OXYCONTIN [Concomitant]
     Dates: start: 20080101

REACTIONS (9)
  - ARTHRITIS [None]
  - FAILED INDUCTION OF LABOUR [None]
  - INJECTION SITE ERYTHEMA [None]
  - INJECTION SITE PAIN [None]
  - INJECTION SITE PRURITUS [None]
  - INJECTION SITE REACTION [None]
  - INJECTION SITE URTICARIA [None]
  - INJECTION SITE WARMTH [None]
  - SKIN REACTION [None]
